FAERS Safety Report 4562891-3 (Version None)
Quarter: 2005Q1

REPORT INFORMATION
  Report Type: 
  Country: None (occurrence: None)
  Receive Date: 20050121
  Receipt Date: 20050105
  Transmission Date: 20050727
  Serious: Yes (Death, Other)
  Sender: FDA-Public Use
  Company Number: CAN-2005-0000232

PATIENT
  Age: 34 Year
  Sex: Female

DRUGS (6)
  1. MORPHINE SULFATE [Suspect]
  2. CODEINE(CODEINE) OTHER [Suspect]
  3. RITALIN [Suspect]
  4. ACETAMINOPHEN [Suspect]
  5. CAFFEINE(CAFFEINE) [Suspect]
  6. ALCOHOL(ETHANOL) [Suspect]

REACTIONS (6)
  - BLOOD ALCOHOL INCREASED [None]
  - COMPLETED SUICIDE [None]
  - DEPENDENCE [None]
  - DRUG WITHDRAWAL SYNDROME [None]
  - INJURY ASPHYXIATION [None]
  - TOXICOLOGIC TEST ABNORMAL [None]
